FAERS Safety Report 21186212 (Version 1)
Quarter: 2022Q3

REPORT INFORMATION
  Report Type: Spontaneous
  Country: US (occurrence: US)
  Receive Date: 20220808
  Receipt Date: 20220808
  Transmission Date: 20221026
  Serious: No
  Sender: FDA-Public Use
  Company Number: US-INSUD PHARMA-2208US03106

PATIENT

DRUGS (1)
  1. CLOBETASOL [Suspect]
     Active Substance: CLOBETASOL
     Indication: Stasis dermatitis
     Dosage: UNK
     Route: 061
     Dates: start: 202207

REACTIONS (13)
  - Malaise [Unknown]
  - Dizziness [Unknown]
  - Asthenia [Unknown]
  - Fatigue [Not Recovered/Not Resolved]
  - Burning sensation [Not Recovered/Not Resolved]
  - Abdominal pain upper [Unknown]
  - Arthralgia [Not Recovered/Not Resolved]
  - Pain of skin [Not Recovered/Not Resolved]
  - Oral discomfort [Unknown]
  - Dysgeusia [Not Recovered/Not Resolved]
  - Parosmia [Not Recovered/Not Resolved]
  - Insomnia [Unknown]
  - Therapeutic product effect incomplete [Unknown]

NARRATIVE: CASE EVENT DATE: 20220101
